FAERS Safety Report 7284166-4 (Version None)
Quarter: 2011Q1

REPORT INFORMATION
  Report Type: 
  Country: None (occurrence: None)
  Receive Date: 20110209
  Receipt Date: 20110201
  Transmission Date: 20110831
  Serious: Yes (Hospitalization)
  Sender: FDA-Public Use
  Company Number: BR-US-EMD SERONO, INC.-7022393

PATIENT
  Sex: Female

DRUGS (7)
  1. GABAPENTIN [Concomitant]
  2. DIGESAN [Concomitant]
  3. PANTOPRAZOLE [Concomitant]
  4. CITALOPRAM [Concomitant]
  5. REBIF [Suspect]
     Indication: RELAPSING-REMITTING MULTIPLE SCLEROSIS
     Route: 058
     Dates: start: 20100810
  6. TAMISA [Concomitant]
     Indication: CONTRACEPTION
  7. PROPRANOLOL [Concomitant]

REACTIONS (2)
  - INJECTION SITE ERYTHEMA [None]
  - MUSCULAR WEAKNESS [None]
